FAERS Safety Report 13576212 (Version 1)
Quarter: 2017Q2

REPORT INFORMATION
  Report Type: Spontaneous
  Country: TR (occurrence: TR)
  Receive Date: 20170524
  Receipt Date: 20170524
  Transmission Date: 20170830
  Serious: Yes (Life-Threatening, Hospitalization, Other)
  Sender: FDA-Public Use
  Company Number: TR-ELI_LILLY_AND_COMPANY-TR201705006994

PATIENT
  Age: 64 Year
  Sex: Female

DRUGS (2)
  1. CARBOPLATIN. [Concomitant]
     Active Substance: CARBOPLATIN
     Indication: OVARIAN CANCER METASTATIC
     Dosage: UNK, CYCLICAL
     Route: 042
  2. GEMCITABINE HYDROCHLORIDE. [Suspect]
     Active Substance: GEMCITABINE HYDROCHLORIDE
     Indication: OVARIAN CANCER METASTATIC
     Dosage: UNK, CYCLICAL
     Route: 042

REACTIONS (3)
  - Arteriospasm coronary [Recovered/Resolved]
  - Cardiotoxicity [Recovered/Resolved]
  - Myocardial infarction [Recovered/Resolved]
